FAERS Safety Report 17527846 (Version 2)
Quarter: 2020Q2

REPORT INFORMATION
  Report Type: Spontaneous
  Country: GR (occurrence: GR)
  Receive Date: 20200311
  Receipt Date: 20200407
  Transmission Date: 20200713
  Serious: Yes (Disabling)
  Sender: FDA-Public Use
  Company Number: GR-GUERBET-GR-20200006

PATIENT
  Age: 57 Year
  Sex: Male
  Weight: 122 kg

DRUGS (2)
  1. DOTAREM [Suspect]
     Active Substance: GADOTERATE MEGLUMINE
     Indication: MAGNETIC RESONANCE IMAGING BRAIN
     Route: 065
     Dates: start: 20200109, end: 20200109
  2. T4 [Concomitant]
     Active Substance: LEVOTHYROXINE
     Indication: HYPOTHYROIDISM
     Route: 048

REACTIONS (7)
  - Visual impairment [Not Recovered/Not Resolved]
  - Nervousness [Recovered/Resolved]
  - Tearfulness [Recovered/Resolved]
  - Diarrhoea [Recovered/Resolved]
  - Photophobia [Recovered/Resolved]
  - Conjunctivitis [Recovered/Resolved]
  - Catarrh [Recovered/Resolved]

NARRATIVE: CASE EVENT DATE: 20200110
